FAERS Safety Report 22119000 (Version 2)
Quarter: 2024Q2

REPORT INFORMATION
  Report Type: Spontaneous
  Country: IT (occurrence: IT)
  Receive Date: 20230321
  Receipt Date: 20240426
  Transmission Date: 20240716
  Serious: Yes (Hospitalization)
  Sender: FDA-Public Use
  Company Number: IT-SUN PHARMACEUTICAL INDUSTRIES LTD-2023R1-382093

PATIENT
  Age: 23 Year
  Sex: Male

DRUGS (2)
  1. HALOPERIDOL [Suspect]
     Active Substance: HALOPERIDOL
     Indication: Psychotic disorder
     Dosage: 3 MILLIGRAM, DAILY
     Route: 065
  2. VALPROIC ACID [Suspect]
     Active Substance: VALPROIC ACID
     Indication: Psychotic disorder
     Dosage: 1000 MILLIGRAM, DAILY
     Route: 065

REACTIONS (2)
  - Akathisia [Recovered/Resolved]
  - Psychomotor hyperactivity [Recovered/Resolved]
